FAERS Safety Report 17027146 (Version 1)
Quarter: 2019Q4

REPORT INFORMATION
  Report Type: Other
  Country: FR (occurrence: FR)
  Receive Date: 20191113
  Receipt Date: 20191113
  Transmission Date: 20200122
  Serious: Yes (Other)
  Sender: FDA-Public Use
  Company Number: FR-HARMONY BIOSCIENCES-2019HMY00017

PATIENT
  Age: 48 Year
  Sex: Male
  Weight: 73.7 kg

DRUGS (3)
  1. DEROXAT [Concomitant]
     Active Substance: PAROXETINE HYDROCHLORIDE
  2. WAKIX [Suspect]
     Active Substance: PITOLISANT HYDROCHLORIDE
     Dosage: UNK (REDUCED DOSE)
     Route: 048
     Dates: start: 2019
  3. WAKIX [Suspect]
     Active Substance: PITOLISANT HYDROCHLORIDE
     Indication: NARCOLEPSY
     Dosage: 31.5 MG, 1X/DAY
     Route: 048
     Dates: start: 20190903, end: 2019

REACTIONS (2)
  - Hyperhidrosis [Not Recovered/Not Resolved]
  - Myalgia [Recovering/Resolving]

NARRATIVE: CASE EVENT DATE: 201909
